FAERS Safety Report 8707795 (Version 3)
Quarter: 2013Q4

REPORT INFORMATION
  Report Type: Spontaneous
  Country: US (occurrence: US)
  Receive Date: 20120806
  Receipt Date: 20131106
  Transmission Date: 20140711
  Serious: Yes (Other)
  Sender: FDA-Public Use
  Company Number: US-009507513-1208USA000488

PATIENT
  Sex: Male
  Weight: 75.11 kg

DRUGS (13)
  1. PEGINTRON [Suspect]
     Indication: HEPATITIS C
     Dosage: 120 MICROGRAM, QW
     Route: 058
     Dates: start: 20120118
  2. RIBASPHERE [Suspect]
     Dosage: 600MG AM AND 400MG PM
     Dates: start: 20120118
  3. TELAPREVIR [Suspect]
     Dosage: UNK
     Dates: start: 201202, end: 2012
  4. FLEXERIL [Concomitant]
     Dosage: 10 MG, QD
     Route: 048
  5. TYLENOL [Concomitant]
     Route: 048
  6. OMEPRAZOLE [Concomitant]
     Dosage: 20 MG, QD
     Route: 048
  7. FLECTOR [Concomitant]
     Dosage: 1 DF, QD
     Route: 062
  8. IBUPROFEN [Concomitant]
     Dosage: 2 DF, QD (AM)
     Route: 048
  9. ALEVE [Concomitant]
     Dosage: UNK, QD (PM)
     Route: 048
  10. ESCITALOPRAM OXALATE [Concomitant]
     Dosage: UNK, QD
     Route: 048
  11. TIZANIDINE HYDROCHLORIDE [Concomitant]
     Dosage: 3 DF, QD (PM)
     Route: 048
  12. CLARITIN [Concomitant]
     Indication: PRURITUS
     Dosage: 1 TO 2 PER DAY
  13. HYDROXYZINE HYDROCHLORIDE [Concomitant]
     Indication: PRURITUS
     Dosage: 1 DF, 2-3 TIMES DAILY AS NEEDED

REACTIONS (16)
  - Spinal fusion surgery [Unknown]
  - Intervertebral disc protrusion [Unknown]
  - Fall [Unknown]
  - Osteoarthritis [Unknown]
  - Diverticulum intestinal [Unknown]
  - Spinal cord compression [Unknown]
  - Dyspepsia [Unknown]
  - Iron deficiency anaemia [Unknown]
  - Large intestine polyp [Unknown]
  - Pain [Unknown]
  - Anaemia [Unknown]
  - Depression [Not Recovered/Not Resolved]
  - Rash [Recovered/Resolved]
  - Fatigue [Unknown]
  - Leukopenia [Unknown]
  - Abdominal pain [Unknown]
